FAERS Safety Report 9374017 (Version 1)
Quarter: 2013Q2

REPORT INFORMATION
  Report Type: Spontaneous
  Country: IN (occurrence: IN)
  Receive Date: 20130628
  Receipt Date: 20130628
  Transmission Date: 20140414
  Serious: Yes (Other)
  Sender: FDA-Public Use
  Company Number: IN-ACCORD-018276

PATIENT
  Age: 63 Year
  Sex: Female

DRUGS (2)
  1. TRAMADOL [Suspect]
     Indication: CANCER PAIN
  2. ACETAMINOPHEN [Concomitant]
     Indication: CANCER PAIN

REACTIONS (1)
  - Urinary incontinence [Recovered/Resolved]
